FAERS Safety Report 5870463-3 (Version None)
Quarter: 2008Q3

REPORT INFORMATION
  Report Type: 
  Country: None (occurrence: None)
  Receive Date: 20080904
  Receipt Date: 20071012
  Transmission Date: 20090109
  Serious: No
  Sender: FDA-Public Use
  Company Number: US-BRISTOL-MYERS SQUIBB COMPANY-13940150

PATIENT
  Age: 69 Year
  Sex: Male
  Weight: 139 kg

DRUGS (26)
  1. DEFINITY [Suspect]
     Indication: ECHOCARDIOGRAM
     Dosage: 1CC OF PERFLUTREN DILUTED IN 9CC OF NORMAL SALINE.
     Route: 042
     Dates: start: 20071009, end: 20071009
  2. HEPARIN [Concomitant]
  3. DIPRIVAN [Concomitant]
  4. POTASSIUM CHLORIDE [Concomitant]
  5. INSULIN [Concomitant]
  6. LISINOPRIL [Concomitant]
  7. ASPIRIN [Concomitant]
  8. TYLENOL (CAPLET) [Concomitant]
  9. COREG [Concomitant]
  10. ASCORBIC ACID [Concomitant]
  11. ADVAIR DISKUS 100/50 [Concomitant]
  12. LIPITOR [Concomitant]
  13. IMODIUM [Concomitant]
  14. SENNA [Concomitant]
  15. COUMADIN [Concomitant]
  16. MULTI-VITAMIN [Concomitant]
  17. CIPRO [Concomitant]
  18. PROTONIX [Concomitant]
  19. AMIODARONE [Concomitant]
  20. MILK OF MAGNESIA [Concomitant]
  21. UROXATRAL [Concomitant]
  22. LEVOTHYROXINE SODIUM [Concomitant]
  23. BUMEX [Concomitant]
  24. PANTOPRAZOLE [Concomitant]
  25. HYDRALAZINE HCL [Concomitant]
  26. ZAROXOLYN [Concomitant]

REACTIONS (1)
  - BACK PAIN [None]
